FAERS Safety Report 19704291 (Version 7)
Quarter: 2022Q2

REPORT INFORMATION
  Report Type: Report from Study
  Country: US (occurrence: US)
  Receive Date: 20210816
  Receipt Date: 20220520
  Transmission Date: 20220721
  Serious: Yes (Hospitalization, Other)
  Sender: FDA-Public Use
  Company Number: US-BIOVITRUM-2021US7389

PATIENT
  Age: 10 Year
  Sex: Female

DRUGS (4)
  1. KINERET [Suspect]
     Active Substance: ANAKINRA
     Indication: Autoinflammatory disease
     Route: 058
     Dates: start: 20190412
  2. KINERET [Suspect]
     Active Substance: ANAKINRA
     Indication: Gene mutation
     Route: 058
     Dates: start: 20210722
  3. KINERET [Suspect]
     Active Substance: ANAKINRA
     Indication: Immune system disorder
  4. KINERET [Suspect]
     Active Substance: ANAKINRA
     Indication: Disease susceptibility

REACTIONS (11)
  - Immune system disorder [Unknown]
  - Condition aggravated [Unknown]
  - Nasopharyngitis [Unknown]
  - Ulcer [Recovering/Resolving]
  - Stomatitis [Recovering/Resolving]
  - Condition aggravated [Unknown]
  - Autoinflammatory disease [Unknown]
  - Gene mutation [Unknown]
  - Injection site reaction [Unknown]
  - Injection site pain [Unknown]
  - Off label use [Unknown]

NARRATIVE: CASE EVENT DATE: 20190412
